FAERS Safety Report 17759593 (Version 5)
Quarter: 2021Q1

REPORT INFORMATION
  Report Type: Spontaneous
  Country: US (occurrence: US)
  Receive Date: 20200508
  Receipt Date: 20210115
  Transmission Date: 20210419
  Serious: Yes (Other)
  Sender: FDA-Public Use
  Company Number: US-GILEAD-2020-0464245

PATIENT
  Age: 57 Year
  Sex: Male
  Weight: 94.33 kg

DRUGS (21)
  1. ATORVASTATIN [Concomitant]
     Active Substance: ATORVASTATIN
  2. NARCAN [Concomitant]
     Active Substance: NALOXONE HYDROCHLORIDE
  3. ZINC. [Concomitant]
     Active Substance: ZINC
  4. HYDROCODONE/ACETAMINOPHEN [Concomitant]
     Active Substance: ACETAMINOPHEN\HYDROCODONE
  5. ASPIRIN [ACETYLSALICYLIC ACID] [Concomitant]
     Active Substance: ASPIRIN
  6. TRUVADA [Suspect]
     Active Substance: EMTRICITABINE\TENOFOVIR DISOPROXIL FUMARATE
     Dosage: UNK
     Route: 048
     Dates: start: 20090430, end: 20130131
  7. BIKTARVY [Concomitant]
     Active Substance: BICTEGRAVIR SODIUM\EMTRICITABINE\TENOFOVIR ALAFENAMIDE FUMARATE
  8. METOPROLOL TARTRATE. [Concomitant]
     Active Substance: METOPROLOL TARTRATE
  9. PEPCID [Concomitant]
     Active Substance: FAMOTIDINE
  10. VITAMIN D 2000 [Concomitant]
     Active Substance: VITAMIN D NOS
  11. TRUVADA [Suspect]
     Active Substance: EMTRICITABINE\TENOFOVIR DISOPROXIL FUMARATE
     Indication: HIV INFECTION
     Dosage: UNK
     Route: 048
     Dates: start: 200905, end: 201302
  12. OMEPRAZOLE. [Concomitant]
     Active Substance: OMEPRAZOLE
  13. IBUPROFEN. [Concomitant]
     Active Substance: IBUPROFEN
  14. KETOROLAC [Concomitant]
     Active Substance: KETOROLAC TROMETHAMINE
  15. HYTRIN [Concomitant]
     Active Substance: TERAZOSIN HYDROCHLORIDE
  16. NITROSTAT [Concomitant]
     Active Substance: NITROGLYCERIN
  17. NORVASC [Concomitant]
     Active Substance: AMLODIPINE BESYLATE
  18. LISINOPRIL. [Concomitant]
     Active Substance: LISINOPRIL
  19. ALBUTEROL [SALBUTAMOL] [Concomitant]
     Active Substance: ALBUTEROL
  20. TESTOSTERONE. [Concomitant]
     Active Substance: TESTOSTERONE
  21. BACTRIM [Concomitant]
     Active Substance: SULFAMETHOXAZOLE\TRIMETHOPRIM

REACTIONS (8)
  - Pain [Unknown]
  - Acute kidney injury [Unknown]
  - Renal failure [Unknown]
  - Bone density decreased [Unknown]
  - Chronic kidney disease [Recovering/Resolving]
  - Osteonecrosis [Recovered/Resolved]
  - Bone loss [Unknown]
  - Emotional distress [Unknown]

NARRATIVE: CASE EVENT DATE: 20121204
